FAERS Safety Report 18532327 (Version 4)
Quarter: 2020Q4

REPORT INFORMATION
  Report Type: Spontaneous
  Country: RO (occurrence: RO)
  Receive Date: 20201123
  Receipt Date: 20201201
  Transmission Date: 20210114
  Serious: Yes (Death, Life-Threatening, Hospitalization, Other)
  Sender: FDA-Public Use
  Company Number: RO-AUROBINDO-AUR-APL-2020-057041

PATIENT
  Age: 46 Year
  Sex: Male

DRUGS (13)
  1. DEXAMETHASONE. [Suspect]
     Active Substance: DEXAMETHASONE
     Indication: CHRONIC MYELOID LEUKAEMIA
     Dosage: 40 MILLIGRAM, ONCE A DAY, 40 MG ON DAY 1-2, 8-9, 15-16 AND 22-23)
     Route: 037
  2. DEXAMETHASONE. [Suspect]
     Active Substance: DEXAMETHASONE
     Indication: PROPHYLAXIS
     Dosage: 4 MILLIGRAM, ONCE A DAY,(40 MG ON DAY 1-2, 8-9, 15-16 AND 22-23)
     Route: 037
  3. METHOTREXATE. [Suspect]
     Active Substance: METHOTREXATE
     Indication: CHRONIC MYELOID LEUKAEMIA
     Dosage: 1900 MILLIGRAM, ONCE A DAY, (1900 MG, PER DAY, ON DAY 1)
     Route: 065
  4. VINCRISTINE [Suspect]
     Active Substance: VINCRISTINE
     Indication: CHRONIC MYELOID LEUKAEMIA
     Dosage: 2 MILLIGRAM, ONCE A DAY, (2 MG ON DAY 1,8,15 AND 22)
     Route: 065
  5. IMATINIB FILM COATED TABLETS [Suspect]
     Active Substance: IMATINIB
     Indication: CHRONIC MYELOID LEUKAEMIA
     Dosage: 800 MILLIGRAM, ONCE A DAY (FROM DAY 1 TO DAY 28)
     Route: 048
  6. HYDREA [Suspect]
     Active Substance: HYDROXYUREA
     Indication: PRODUCT USED FOR UNKNOWN INDICATION
     Dosage: 1000 MILLIGRAM, TWO TIMES A DAY (2000 MILLIGRAM, ONCE A DAY)
     Route: 065
  7. ALOPURINOL [Suspect]
     Active Substance: ALLOPURINOL
     Indication: BLOOD URIC ACID ABNORMAL
     Dosage: 100 MILLIGRAM, TWO TIMES A DAY (200 MILLIGRAM, ONCE A DAY)
     Route: 065
  8. IMATINIB FILM COATED TABLETS [Suspect]
     Active Substance: IMATINIB
     Dosage: 800 MILLIGRAM, CYCLICAL
     Route: 048
  9. CYTOSAR [Suspect]
     Active Substance: CYTARABINE
     Indication: PROPHYLAXIS
     Dosage: 40 MILLIGRAM
     Route: 037
  10. GRANULOCYTE COLONY STIMULATING FACTOR [Concomitant]
     Active Substance: GRANULOCYTE COLONY-STIMULATING FACTOR NOS
     Indication: APLASIA
     Dosage: UNK
     Route: 065
  11. CYTOSAR [Suspect]
     Active Substance: CYTARABINE
     Indication: CHRONIC MYELOID LEUKAEMIA
     Dosage: 5700 MILLIGRAM, TWO TIMES A DAY, (5700 MG, BID ON DAY 2 AND 3)
     Route: 037
  12. METHOTREXATE. [Suspect]
     Active Substance: METHOTREXATE
     Indication: PROPHYLAXIS
     Dosage: 15 MILLIGRAM
     Route: 037
  13. CALCIUM FOLINATE [Concomitant]
     Active Substance: LEUCOVORIN CALCIUM
     Indication: PRODUCT USED FOR UNKNOWN INDICATION
     Dosage: UNK
     Route: 065

REACTIONS (16)
  - Acinetobacter sepsis [Fatal]
  - Aplasia [Recovered/Resolved]
  - Bone marrow failure [Recovered/Resolved]
  - Product use in unapproved indication [Unknown]
  - Condition aggravated [Unknown]
  - Pyrexia [Not Recovered/Not Resolved]
  - Sepsis [Fatal]
  - Drug resistance [Fatal]
  - Acinetobacter infection [Fatal]
  - Drug ineffective [Fatal]
  - Multiple-drug resistance [Fatal]
  - Off label use [Fatal]
  - Oxygen saturation decreased [Not Recovered/Not Resolved]
  - Thrombocytopenia [Not Recovered/Not Resolved]
  - Cough [Not Recovered/Not Resolved]
  - Blood pressure decreased [Not Recovered/Not Resolved]
